FAERS Safety Report 9319286 (Version 2)
Quarter: 2013Q3

REPORT INFORMATION
  Report Type: Spontaneous
  Country: DK (occurrence: FR)
  Receive Date: 20130530
  Receipt Date: 20130919
  Transmission Date: 20140515
  Serious: Yes (Hospitalization)
  Sender: FDA-Public Use
  Company Number: FR-FRI-1000045448

PATIENT
  Age: 29 Year
  Sex: Female

DRUGS (5)
  1. ESCITALOPRAM [Suspect]
     Route: 048
     Dates: start: 201205, end: 201301
  2. CITALOPRAM [Suspect]
     Dosage: 20 MG
     Route: 048
     Dates: start: 201301, end: 20130422
  3. EFFEXOR [Suspect]
     Dosage: 75 MG
     Route: 048
     Dates: start: 20130423
  4. CERAZETTE [Concomitant]
     Indication: ORAL CONTRACEPTION
     Route: 048
     Dates: start: 2010
  5. LEXOMIL [Concomitant]
     Dosage: 1 DF
     Route: 048
     Dates: start: 20130423

REACTIONS (1)
  - Galactorrhoea [Unknown]
